FAERS Safety Report 23995923 (Version 1)
Quarter: 2024Q2

REPORT INFORMATION
  Report Type: Spontaneous
  Country: US (occurrence: US)
  Receive Date: 20240620
  Receipt Date: 20240620
  Transmission Date: 20240716
  Serious: No
  Sender: FDA-Public Use
  Company Number: US-PFIZER INC-202400194410

PATIENT
  Age: 39 Year
  Sex: Female

DRUGS (11)
  1. PAXLOVID [Suspect]
     Active Substance: NIRMATRELVIR\RITONAVIR
     Indication: COVID-19 treatment
     Dosage: UNK
     Dates: start: 20240604, end: 20240609
  2. TYLENOL [Concomitant]
     Active Substance: ACETAMINOPHEN
  3. LEVOMEFOLIC ACID [Concomitant]
     Active Substance: LEVOMEFOLIC ACID
  4. IRON [Concomitant]
     Active Substance: IRON
  5. LEVOTHYROXINE [Concomitant]
     Active Substance: LEVOTHYROXINE\LEVOTHYROXINE SODIUM
  6. PEPCID AC [Concomitant]
     Active Substance: FAMOTIDINE
  7. COLACE [Concomitant]
     Active Substance: DOCUSATE SODIUM
  8. FENTANYL [Concomitant]
     Active Substance: FENTANYL\FENTANYL CITRATE
  9. NITROUS OXIDE [Concomitant]
     Active Substance: NITROUS OXIDE
  10. TUMS [Concomitant]
     Active Substance: CALCIUM CARBONATE
  11. PITOCIN [Concomitant]
     Active Substance: OXYTOCIN

REACTIONS (2)
  - COVID-19 [Recovering/Resolving]
  - Disease recurrence [Recovering/Resolving]

NARRATIVE: CASE EVENT DATE: 20240612
